FAERS Safety Report 4464558-9 (Version None)
Quarter: 2004Q3

REPORT INFORMATION
  Report Type: 
  Country: None (occurrence: None)
  Receive Date: 20040929
  Receipt Date: 20040914
  Transmission Date: 20050211
  Serious: No
  Sender: FDA-Public Use
  Company Number: 2004-BP-07962BP

PATIENT
  Age: 27 Year
  Sex: Female

DRUGS (3)
  1. VIRAMUNE [Suspect]
     Indication: HIV INFECTION
     Dosage: 400 MG QD PO  ; 200 MG QD PO
     Route: 048
     Dates: start: 20040211, end: 20040227
  2. VIRAMUNE [Suspect]
     Indication: HIV INFECTION
     Dosage: 400 MG QD PO  ; 200 MG QD PO
     Route: 048
     Dates: start: 20040228
  3. COMBIVIR [Suspect]
     Dosage: SEE TEXT  600/300 MG 2/DAY, PO
     Route: 048
     Dates: start: 20040211

REACTIONS (2)
  - ABORTION SPONTANEOUS [None]
  - DRUG EXPOSURE DURING PREGNANCY [None]
